FAERS Safety Report 14803409 (Version 1)
Quarter: 2018Q2

REPORT INFORMATION
  Report Type: Spontaneous
  Country: US (occurrence: US)
  Receive Date: 20180425
  Receipt Date: 20180425
  Transmission Date: 20180711
  Serious: No
  Sender: FDA-Public Use
  Company Number: US-ASTRAZENECA-2018SE38663

PATIENT
  Age: 843 Month
  Sex: Female
  Weight: 96.6 kg

DRUGS (4)
  1. OXYCODONE [Concomitant]
     Active Substance: OXYCODONE
  2. AVAPRO [Concomitant]
     Active Substance: IRBESARTAN
     Indication: HYPERTENSION
     Route: 048
  3. METFORMIN [Concomitant]
     Active Substance: METFORMIN HYDROCHLORIDE
     Dosage: TWO TIMES A DAY
     Route: 048
  4. BYDUREON [Suspect]
     Active Substance: EXENATIDE
     Indication: TYPE 2 DIABETES MELLITUS
     Route: 058
     Dates: start: 20180319

REACTIONS (3)
  - Blood glucose increased [Unknown]
  - Weight increased [Unknown]
  - Blood glucose abnormal [Unknown]

NARRATIVE: CASE EVENT DATE: 201803
